FAERS Safety Report 7885865 (Version 3)
Quarter: 2012Q4

REPORT INFORMATION
  Report Type: Report from Study
  Country: JP (occurrence: JP)
  Receive Date: 20110405
  Receipt Date: 20121220
  Transmission Date: 20130627
  Serious: Yes (Death)
  Sender: FDA-Public Use
  Company Number: JP-GILEAD-E2B_00001179

PATIENT
  Age: 65 Year
  Sex: Female

DRUGS (18)
  1. AMBRISENTAN [Suspect]
     Indication: PULMONARY HYPERTENSION
     Dosage: 5 mg, Per Day
     Route: 048
     Dates: start: 20110311, end: 20110323
  2. AMBRISENTAN [Suspect]
     Dosage: 2.5 mg, Per day
     Route: 048
     Dates: start: 20110307, end: 20110310
  3. REVATIO [Concomitant]
     Indication: PULMONARY ARTERIAL HYPERTENSION
  4. REVATIO [Concomitant]
     Route: 048
     Dates: start: 20110315, end: 20110323
  5. BERAPROST SODIUM [Concomitant]
  6. BERASUS LA [Concomitant]
     Indication: PULMONARY ARTERIAL HYPERTENSION
     Route: 048
     Dates: end: 20110323
  7. ATELEC [Concomitant]
     Route: 048
     Dates: end: 20110323
  8. ASPARA-CA [Concomitant]
     Route: 048
     Dates: end: 20110323
  9. CRESTOR [Concomitant]
     Route: 048
     Dates: end: 20110323
  10. CLARITH [Concomitant]
     Route: 048
     Dates: end: 20110323
  11. CODEINE PHOSPHATE [Concomitant]
     Route: 048
     Dates: end: 20110323
  12. SPIROPENT [Concomitant]
     Route: 048
     Dates: end: 20110323
  13. TAKEPRON [Concomitant]
     Route: 048
     Dates: end: 20110323
  14. PREDONINE [Concomitant]
     Route: 048
     Dates: end: 20110323
  15. MUCOSOLVAN [Concomitant]
     Route: 048
     Dates: end: 20110323
  16. METALCAPTASE [Concomitant]
     Route: 048
     Dates: end: 20110323
  17. JUVELA N [Concomitant]
     Route: 048
     Dates: end: 20110323
  18. ROCALTROL [Concomitant]
     Route: 048
     Dates: end: 20110323

REACTIONS (2)
  - Interstitial lung disease [Fatal]
  - Cardiac failure [Fatal]
